FAERS Safety Report 4976221-6 (Version None)
Quarter: 2006Q2

REPORT INFORMATION
  Report Type: 
  Country: None (occurrence: None)
  Receive Date: 20060419
  Receipt Date: 20060410
  Transmission Date: 20061013
  Serious: Yes (Hospitalization)
  Sender: FDA-Public Use
  Company Number: PHEH2006US04768

PATIENT
  Sex: Male

DRUGS (1)
  1. FOCALIN XR [Suspect]
     Dosage: 10 MG, UNK
     Route: 048

REACTIONS (1)
  - SUICIDE ATTEMPT [None]
